FAERS Safety Report 25583607 (Version 1)
Quarter: 2025Q3

REPORT INFORMATION
  Report Type: Report from Study
  Country: US (occurrence: US)
  Receive Date: 20250721
  Receipt Date: 20250721
  Transmission Date: 20251020
  Serious: Yes (Other)
  Sender: ROCHE
  Company Number: US-ROCHE-10000338400

PATIENT
  Sex: Female

DRUGS (1)
  1. MYCOPHENOLATE MOFETIL [Suspect]
     Active Substance: MYCOPHENOLATE MOFETIL
     Indication: Psoriatic arthropathy
     Dosage: 3 PILLS BID
     Route: 065

REACTIONS (4)
  - Blindness unilateral [Unknown]
  - Blood pressure inadequately controlled [Unknown]
  - Off label use [Unknown]
  - General physical health deterioration [Unknown]
